FAERS Safety Report 14562481 (Version 4)
Quarter: 2022Q1

REPORT INFORMATION
  Report Type: Spontaneous
  Country: CN (occurrence: CN)
  Receive Date: 20180222
  Receipt Date: 20220105
  Transmission Date: 20220424
  Serious: Yes (Other)
  Sender: FDA-Public Use
  Company Number: CN-PFIZER INC-2018073146

PATIENT
  Age: 30 Year
  Sex: Female

DRUGS (1)
  1. PROPOFOL [Suspect]
     Active Substance: PROPOFOL
     Indication: Anaesthesia
     Dosage: 3.3 MG/KG, UNK (INFUSION)
     Route: 042

REACTIONS (2)
  - Propofol infusion syndrome [Unknown]
  - Encephalopathy [Unknown]
